FAERS Safety Report 13868501 (Version 2)
Quarter: 2017Q4

REPORT INFORMATION
  Report Type: Spontaneous
  Country: US (occurrence: US)
  Receive Date: 20170815
  Receipt Date: 20171003
  Transmission Date: 20180320
  Serious: Yes (Life-Threatening)
  Sender: FDA-Public Use
  Company Number: US-ALKABELLO-2017AA001812

PATIENT
  Age: 53 Year
  Sex: Female

DRUGS (1)
  1. TAE BULK UNSPECIFIED [Suspect]
     Active Substance: ALLERGENIC EXTRACTS

REACTIONS (1)
  - Anaphylactic reaction [Unknown]
